FAERS Safety Report 12218330 (Version 1)
Quarter: 2016Q1

REPORT INFORMATION
  Report Type: Spontaneous
  Country: US (occurrence: US)
  Receive Date: 20160329
  Receipt Date: 20160329
  Transmission Date: 20160526
  Serious: No
  Sender: FDA-Public Use
  Company Number: US-ASTRAZENECA-2011BM13544

PATIENT
  Age: 65 Year
  Sex: Female
  Weight: 81.6 kg

DRUGS (18)
  1. SYMLIN [Suspect]
     Active Substance: PRAMLINTIDE ACETATE
     Indication: TYPE 2 DIABETES MELLITUS
     Route: 058
     Dates: end: 201106
  2. SYMLIN [Suspect]
     Active Substance: PRAMLINTIDE ACETATE
     Indication: WEIGHT DECREASED
     Route: 058
     Dates: end: 201106
  3. SYMLIN [Suspect]
     Active Substance: PRAMLINTIDE ACETATE
     Indication: FEELING ABNORMAL
     Route: 058
  4. HYDROCODONE [Concomitant]
     Active Substance: HYDROCODONE
     Indication: TYPE 2 DIABETES MELLITUS
     Route: 058
  5. SYMLIN [Suspect]
     Active Substance: PRAMLINTIDE ACETATE
     Indication: TYPE 2 DIABETES MELLITUS
     Route: 058
  6. SYMLIN [Suspect]
     Active Substance: PRAMLINTIDE ACETATE
     Indication: TYPE 2 DIABETES MELLITUS
     Route: 058
  7. SYMLIN [Suspect]
     Active Substance: PRAMLINTIDE ACETATE
     Indication: WEIGHT DECREASED
     Route: 058
  8. METFORMIN [Concomitant]
     Active Substance: METFORMIN HYDROCHLORIDE
     Indication: TYPE 2 DIABETES MELLITUS
     Route: 048
  9. LANTUS [Concomitant]
     Active Substance: INSULIN GLARGINE
     Indication: PRODUCT USED FOR UNKNOWN INDICATION
     Route: 058
  10. SYMLIN [Suspect]
     Active Substance: PRAMLINTIDE ACETATE
     Indication: FEELING ABNORMAL
     Route: 058
  11. SYMLIN [Suspect]
     Active Substance: PRAMLINTIDE ACETATE
     Indication: FEELING ABNORMAL
     Route: 058
     Dates: end: 201106
  12. SYMLIN [Suspect]
     Active Substance: PRAMLINTIDE ACETATE
     Indication: TYPE 2 DIABETES MELLITUS
     Route: 058
  13. SYMLIN [Suspect]
     Active Substance: PRAMLINTIDE ACETATE
     Indication: FEELING ABNORMAL
     Route: 058
  14. SYMLIN [Suspect]
     Active Substance: PRAMLINTIDE ACETATE
     Indication: TYPE 2 DIABETES MELLITUS
     Route: 058
  15. SYMLIN [Suspect]
     Active Substance: PRAMLINTIDE ACETATE
     Indication: FEELING ABNORMAL
     Route: 058
  16. SYMLIN [Suspect]
     Active Substance: PRAMLINTIDE ACETATE
     Indication: WEIGHT DECREASED
     Route: 058
  17. SYMLIN [Suspect]
     Active Substance: PRAMLINTIDE ACETATE
     Indication: WEIGHT DECREASED
     Route: 058
  18. SYMLIN [Suspect]
     Active Substance: PRAMLINTIDE ACETATE
     Indication: WEIGHT DECREASED
     Route: 058

REACTIONS (7)
  - Product use issue [Unknown]
  - Arthralgia [Recovering/Resolving]
  - Drug dose omission [Not Recovered/Not Resolved]
  - Memory impairment [Not Recovered/Not Resolved]
  - Weight decreased [Not Recovered/Not Resolved]
  - Off label use [Unknown]
  - Wrong technique in product usage process [Recovered/Resolved]

NARRATIVE: CASE EVENT DATE: 201012
